FAERS Safety Report 5886992-2 (Version None)
Quarter: 2008Q3

REPORT INFORMATION
  Report Type: 
  Country: None (occurrence: None)
  Receive Date: 20080917
  Receipt Date: 20080911
  Transmission Date: 20090109
  Serious: Yes (Other)
  Sender: FDA-Public Use
  Company Number: FR-ROXANE LABORATORIES, INC.-2008-RO-00027RO

PATIENT
  Age: 44 Year
  Sex: Female

DRUGS (10)
  1. CYCLOPHOSPHAMIDE [Suspect]
     Indication: BREAST CANCER
  2. GRANISETRON HCL [Suspect]
     Indication: BREAST CANCER
  3. ONDANSETRON [Suspect]
     Indication: BREAST CANCER
  4. EPIRUBICIN [Suspect]
     Indication: BREAST CANCER
  5. METHYLPREDNISOLONE 16MG TAB [Suspect]
     Indication: BREAST CANCER
  6. PREDNISOLONE [Suspect]
     Indication: BREAST CANCER
  7. DOMPERIDONE [Suspect]
     Indication: BREAST CANCER
  8. FLUOROURACIL [Suspect]
     Indication: BREAST CANCER
  9. ALIZAPRIDE [Concomitant]
  10. ANTIHISTAMINES [Concomitant]
     Indication: RASH MACULO-PAPULAR

REACTIONS (4)
  - ADVERSE DRUG REACTION [None]
  - DRUG HYPERSENSITIVITY [None]
  - FLUSHING [None]
  - RASH MACULO-PAPULAR [None]
